FAERS Safety Report 18380968 (Version 1)
Quarter: 2020Q4

REPORT INFORMATION
  Report Type: Spontaneous
  Country: GB (occurrence: GB)
  Receive Date: 20201014
  Receipt Date: 20201014
  Transmission Date: 20210114
  Serious: Yes (Other)
  Sender: FDA-Public Use
  Company Number: GB-TEVA-2020-GB-1837652

PATIENT
  Age: 34 Year
  Sex: Male
  Weight: 69 kg

DRUGS (5)
  1. IBUPROFEN. [Suspect]
     Active Substance: IBUPROFEN
     Dosage: 200 MG
     Dates: start: 20200905
  2. PARACETAMOL [Concomitant]
     Active Substance: ACETAMINOPHEN
     Dosage: 2 DOSAGE FORMS
     Dates: start: 20200905
  3. OPTREX [Concomitant]
     Dosage: APPLY AS DIRECTED
     Dates: start: 20200601
  4. FEXOFENADINE [Concomitant]
     Active Substance: FEXOFENADINE HYDROCHLORIDE
     Dosage: 1 DOSAGE FORMS
     Dates: start: 20200601
  5. JEXT [Concomitant]
     Active Substance: EPINEPHRINE BITARTRATE
     Dosage: AS DIRECTED
     Dates: start: 20200731, end: 20200828

REACTIONS (2)
  - Nasopharyngitis [Recovered/Resolved]
  - Skin texture abnormal [Unknown]

NARRATIVE: CASE EVENT DATE: 20200905
